FAERS Safety Report 21170657 (Version 1)
Quarter: 2022Q3

REPORT INFORMATION
  Report Type: Other
  Country: US (occurrence: None)
  Receive Date: 20220804
  Receipt Date: 20220804
  Transmission Date: 20221027
  Serious: Yes (Death)
  Sender: FDA-Public Use
  Company Number: US-ROCHE-3154168

PATIENT

DRUGS (6)
  1. MYCOPHENOLATE MOFETIL [Suspect]
     Active Substance: MYCOPHENOLATE MOFETIL
     Indication: Lung transplant rejection
     Route: 065
  2. BELATACEPT [Suspect]
     Active Substance: BELATACEPT
     Indication: Lung transplant rejection
     Dosage: FIRST DOSE OF BELATACEPT WAS GIVEN AFTER TRANSPLANT ON DAY 0 AT 10 MG/KG AND SUBSEQUENT DOSES WERE G
     Route: 065
  3. TACROLIMUS [Suspect]
     Active Substance: TACROLIMUS
     Indication: Lung transplant rejection
     Route: 065
  4. PREDNISONE [Suspect]
     Active Substance: PREDNISONE
     Indication: Lung transplant rejection
     Dosage: 0.5 MG/KG ORALLY DAILY THROUGH DAY 14, THEN 0.2 MG/KG DAILY THROUGH DAY 30, THEN 0.1 MG/KG DAILY THR
     Route: 048
  5. METHYLPREDNISOLONE [Suspect]
     Active Substance: METHYLPREDNISOLONE
     Indication: Lung transplant rejection
     Dosage: BEFORE PERFUSION OF THE ALLOGRAFT DURING THE TRANSPLANT SURGERY.
     Route: 042
  6. METHYLPREDNISOLONE [Suspect]
     Active Substance: METHYLPREDNISOLONE
     Dosage: AFTER TRANSPLANT, FOR SIX DOSES.
     Route: 042

REACTIONS (1)
  - Post transplant lymphoproliferative disorder [Fatal]
